FAERS Safety Report 9193263 (Version 2)
Quarter: 2013Q2

REPORT INFORMATION
  Report Type: Spontaneous
  Country: CA (occurrence: CA)
  Receive Date: 20130327
  Receipt Date: 20130402
  Transmission Date: 20140414
  Serious: Yes (Other)
  Sender: FDA-Public Use
  Company Number: CA-ASTRAZENECA-2013SE19320

PATIENT
  Age: 23471 Day
  Sex: Female

DRUGS (4)
  1. PULMICORT TURBUHALER [Suspect]
     Indication: CHRONIC OBSTRUCTIVE PULMONARY DISEASE
     Dosage: 2 INHALATIONS BID
     Route: 055
     Dates: start: 20130315, end: 20130317
  2. PULMICORT TURBUHALER [Suspect]
     Indication: CHRONIC OBSTRUCTIVE PULMONARY DISEASE
     Route: 055
  3. DILANTA [Concomitant]
     Indication: EPILEPSY
     Route: 048
  4. PRIMIDONE [Concomitant]
     Indication: EPILEPSY
     Route: 048

REACTIONS (2)
  - Epileptic aura [Recovered/Resolved]
  - Convulsion [Unknown]
